FAERS Safety Report 26185731 (Version 1)
Quarter: 2025Q4

REPORT INFORMATION
  Report Type: Spontaneous
  Country: US (occurrence: None)
  Receive Date: 20251219
  Receipt Date: 20251219
  Transmission Date: 20260117
  Serious: Yes (Other)
  Sender: FDA-CTU
  Company Number: None

PATIENT
  Age: 15 Year
  Sex: Female
  Weight: 63.3 kg

DRUGS (3)
  1. DARATUMUMAB [Suspect]
     Active Substance: DARATUMUMAB
     Indication: Transplant rejection
     Dates: start: 20251218, end: 20251219
  2. DARATUMUMAB [Suspect]
     Active Substance: DARATUMUMAB
     Indication: Heart transplant rejection
  3. RITUXIMAB [Concomitant]
     Active Substance: RITUXIMAB
     Dates: start: 20251217, end: 20251218

REACTIONS (2)
  - Vision blurred [None]
  - Infusion related reaction [None]

NARRATIVE: CASE EVENT DATE: 20251218
